FAERS Safety Report 15871378 (Version 2)
Quarter: 2019Q1

REPORT INFORMATION
  Report Type: Spontaneous
  Country: US (occurrence: US)
  Receive Date: 20190126
  Receipt Date: 20190221
  Transmission Date: 20190417
  Serious: No
  Sender: FDA-Public Use
  Company Number: US-TEVA-2019-US-1000883

PATIENT
  Sex: Female

DRUGS (1)
  1. QVAR REDIHALER [Suspect]
     Active Substance: BECLOMETHASONE DIPROPIONATE
     Indication: ASTHMA
     Dosage: ONE PUFF
     Dates: end: 201901

REACTIONS (9)
  - Epistaxis [Unknown]
  - Glossodynia [Unknown]
  - Asthenopia [Unknown]
  - Sensation of foreign body [Unknown]
  - Upper respiratory tract congestion [Unknown]
  - Product deposit [Unknown]
  - Nasal congestion [Unknown]
  - Sinusitis [Unknown]
  - Throat irritation [Unknown]
